FAERS Safety Report 26200009 (Version 1)
Quarter: 2025Q4

REPORT INFORMATION
  Report Type: Spontaneous
  Country: CN (occurrence: CN)
  Receive Date: 20251225
  Receipt Date: 20251225
  Transmission Date: 20260118
  Serious: Yes (Other)
  Sender: AMGEN
  Company Number: CN-AMGEN-CHNSP2025250388

PATIENT
  Age: 55 Year
  Sex: Female

DRUGS (7)
  1. XGEVA [Suspect]
     Active Substance: DENOSUMAB
     Indication: Metastases to lung
     Dosage: 120 MILLIGRAM, ONCE, (FREQUENCY: 1/ DURATION OF REGIMEN: 1)
     Route: 058
     Dates: start: 20251208, end: 20251208
  2. CARBOPLATIN [Suspect]
     Active Substance: CARBOPLATIN
     Indication: Adverse drug reaction
     Dosage: 400 MILLIGRAM, (FREQUENCY: 1/ DURATION OF REGIMEN: 1)
     Route: 040
     Dates: start: 20251203, end: 20251203
  3. PEMETREXED DISODIUM [Suspect]
     Active Substance: PEMETREXED DISODIUM
     Indication: Metastases to lung
     Dosage: 900 MILLIGRAM (FREQUENCY: 1/ DURATION OF REGIMEN: 1)
     Route: 040
     Dates: start: 20251203, end: 20251203
  4. BEVACIZUMAB [Suspect]
     Active Substance: BEVACIZUMAB
     Indication: Metastases to lung
     Dosage: 0.700 GRAM (FREQUENCY: 1/ DURATION OF REGIMEN: 1)
     Route: 040
     Dates: start: 20251203, end: 20251203
  5. SODIUM CHLORIDE [Concomitant]
     Active Substance: SODIUM CHLORIDE
     Indication: Product used for unknown indication
     Dosage: 100 MILLILITER
     Route: 040
     Dates: start: 20251203
  6. SODIUM CHLORIDE [Concomitant]
     Active Substance: SODIUM CHLORIDE
     Dosage: 250 MILLILITER
     Route: 040
     Dates: end: 20251203
  7. DEXTROSE [Concomitant]
     Active Substance: DEXTROSE MONOHYDRATE
     Indication: Product used for unknown indication
     Dosage: 500 MILLILITER
     Route: 040
     Dates: start: 20251203, end: 20251203

REACTIONS (3)
  - White blood cell count decreased [Not Recovered/Not Resolved]
  - Liver injury [Not Recovered/Not Resolved]
  - Anaemia [Not Recovered/Not Resolved]

NARRATIVE: CASE EVENT DATE: 20251209
